FAERS Safety Report 18038490 (Version 2)
Quarter: 2020Q3

REPORT INFORMATION
  Report Type: Report from Study
  Country: US (occurrence: US)
  Receive Date: 20200717
  Receipt Date: 20200723
  Transmission Date: 20201103
  Serious: Yes (Hospitalization)
  Sender: FDA-Public Use
  Company Number: US-VERTEX PHARMACEUTICALS-2020-014597

PATIENT
  Age: 26 Year
  Sex: Male

DRUGS (1)
  1. TRIKAFTA [Suspect]
     Active Substance: ELEXACAFTOR\IVACAFTOR\TEZACAFTOR
     Indication: CYSTIC FIBROSIS
     Dosage: 2 ORANGE TABS EVERY AM
     Route: 048
     Dates: start: 20200401

REACTIONS (2)
  - Cystic fibrosis respiratory infection suppression [Unknown]
  - Haemoptysis [Unknown]

NARRATIVE: CASE EVENT DATE: 202006
